FAERS Safety Report 8186794-0 (Version None)
Quarter: 2012Q1

REPORT INFORMATION
  Report Type: 
  Country: None (occurrence: None)
  Receive Date: 20120306
  Receipt Date: 20120306
  Transmission Date: 20120608
  Serious: No
  Sender: FDA-Public Use
  Company Number: None

PATIENT
  Age: 29 Year
  Sex: Male
  Weight: 86.636 kg

DRUGS (1)
  1. SPIRONOLACTONE [Suspect]
     Indication: HYPERALDOSTERONISM
     Dosage: 25 MG
     Route: 048
     Dates: start: 20120223, end: 20120303

REACTIONS (5)
  - SENSATION OF HEAVINESS [None]
  - ASTHENIA [None]
  - OROPHARYNGEAL PAIN [None]
  - PARAESTHESIA [None]
  - FATIGUE [None]
